FAERS Safety Report 25752373 (Version 1)
Quarter: 2025Q3

REPORT INFORMATION
  Report Type: Spontaneous
  Country: IN (occurrence: IN)
  Receive Date: 20250902
  Receipt Date: 20250902
  Transmission Date: 20251021
  Serious: Yes (Death, Hospitalization)
  Sender: PFIZER
  Company Number: IN-PFIZER INC-PV202500104377

PATIENT
  Age: 61 Year
  Sex: Female

DRUGS (1)
  1. CRIZOTINIB [Suspect]
     Active Substance: CRIZOTINIB
     Dosage: 250 MG, 2X/DAY
     Route: 048
     Dates: start: 202505

REACTIONS (16)
  - Somnolence [Fatal]
  - Dyspnoea [Fatal]
  - Peripheral swelling [Fatal]
  - Vomiting [Fatal]
  - Respiratory distress [Fatal]
  - Sepsis [Fatal]
  - Septic shock [Fatal]
  - Urosepsis [Fatal]
  - Hypotension [Fatal]
  - Acute kidney injury [Fatal]
  - Oliguria [Fatal]
  - Hypoalbuminaemia [Fatal]
  - Anaemia [Fatal]
  - Pulmonary tuberculosis [Fatal]
  - Cardiac arrest [Fatal]
  - White blood cell count increased [Fatal]

NARRATIVE: CASE EVENT DATE: 20250101
